FAERS Safety Report 5273411-2 (Version None)
Quarter: 2007Q1

REPORT INFORMATION
  Report Type: 
  Country: None (occurrence: None)
  Receive Date: 20070320
  Receipt Date: 20070308
  Transmission Date: 20070707
  Serious: Yes (Death, Life-Threatening, Hospitalization)
  Sender: FDA-Public Use
  Company Number: 2007RR-06251

PATIENT
  Age: 66 Year
  Sex: Female

DRUGS (4)
  1. IBUPROFEN [Suspect]
     Indication: PAIN
     Dosage: 400 MG, TID, ORAL
     Route: 048
     Dates: start: 20031101, end: 20031102
  2. ASPIRIN (ASPIRIN, ASPIRIN) [Concomitant]
  3. PARACETAMOL (ACETAMINOPHEN/PARACETAMOL, ACETAMINOPHEN/PARACETAMOL) [Concomitant]
  4. FLUARIX [Concomitant]

REACTIONS (5)
  - DISSEMINATED INTRAVASCULAR COAGULATION [None]
  - HAEMODYNAMIC INSTABILITY [None]
  - LEUKOPENIA [None]
  - METABOLIC ACIDOSIS [None]
  - SEPTIC SHOCK [None]
